FAERS Safety Report 6424851-7 (Version None)
Quarter: 2009Q4

REPORT INFORMATION
  Report Type: 
  Country: None (occurrence: None)
  Receive Date: 20091103
  Receipt Date: 20091026
  Transmission Date: 20100525
  Serious: Yes (Hospitalization)
  Sender: FDA-Public Use
  Company Number: US-ASTRAZENECA-2009UW12701

PATIENT
  Age: 37 Year
  Sex: Female
  Weight: 81.6 kg

DRUGS (7)
  1. SEROQUEL XR [Suspect]
     Indication: BIPOLAR DISORDER
     Route: 048
     Dates: start: 20090319, end: 20090427
  2. LAMICTAL [Concomitant]
     Indication: BIPOLAR DISORDER
     Route: 048
     Dates: start: 20050114
  3. GEODON [Concomitant]
     Indication: BIPOLAR DISORDER
     Route: 048
     Dates: start: 20060427, end: 20090724
  4. TOPAMAX [Concomitant]
     Indication: DECREASED APPETITE
     Route: 048
     Dates: start: 20070412, end: 20091009
  5. VALIUM [Concomitant]
     Indication: ANXIETY
     Route: 048
     Dates: start: 20041223
  6. AVIANE-28 [Concomitant]
     Indication: ORAL CONTRACEPTION
  7. KAPIDEX [Concomitant]
     Indication: GASTROOESOPHAGEAL REFLUX DISEASE

REACTIONS (10)
  - CONTUSION [None]
  - DIZZINESS [None]
  - FACIAL BONES FRACTURE [None]
  - FALL [None]
  - FATIGUE [None]
  - HEAD INJURY [None]
  - HEADACHE [None]
  - LOSS OF CONSCIOUSNESS [None]
  - NAUSEA [None]
  - VOMITING [None]
